FAERS Safety Report 9648185 (Version 1)
Quarter: 2013Q4

REPORT INFORMATION
  Report Type: Spontaneous
  Country: US (occurrence: None)
  Receive Date: 20131024
  Receipt Date: 20131024
  Transmission Date: 20140711
  Serious: Yes (Life-Threatening)
  Sender: FDA-Public Use
  Company Number: None

PATIENT
  Age: 59 Year
  Sex: Female
  Weight: 63.5 kg

DRUGS (16)
  1. VIIBRYD [Suspect]
     Indication: ANTIDEPRESSANT THERAPY
     Dosage: START WITH 10 MG THEN 20MG THEN 40 MG (3 WKS)?1 PILL?ONCE A DAY?BY MOUTH
     Route: 048
     Dates: start: 20130810, end: 20130825
  2. MORPHINE IR [Concomitant]
  3. OXYCONTIN [Concomitant]
  4. AMBIEN CR [Concomitant]
  5. SILENOR [Concomitant]
  6. LASIX [Concomitant]
  7. CLONIDINE [Concomitant]
  8. CALTRATE D [Concomitant]
  9. VITAMINS PROBIOTICS [Concomitant]
  10. POTASSIUM [Concomitant]
  11. PRILOSEC [Concomitant]
  12. EXTREA STRENGTH ANACIN [Concomitant]
  13. SUBSYS [Concomitant]
  14. ZANAFLEX [Concomitant]
  15. SAVELLA [Concomitant]
  16. XANEX [Concomitant]

REACTIONS (4)
  - Suicide attempt [None]
  - Mental disorder [None]
  - Back pain [None]
  - Amnesia [None]
